FAERS Safety Report 19931173 (Version 1)
Quarter: 2021Q4

REPORT INFORMATION
  Report Type: Spontaneous
  Country: JP (occurrence: JP)
  Receive Date: 20211007
  Receipt Date: 20211007
  Transmission Date: 20220303
  Serious: Yes (Other)
  Sender: FDA-Public Use
  Company Number: JP-PFIZER INC-202101276128

PATIENT
  Age: 8 Decade
  Sex: Male

DRUGS (4)
  1. PREGABALIN [Suspect]
     Active Substance: PREGABALIN
     Dosage: 50 MG, DAILY
  2. OXYCODONE [Concomitant]
     Active Substance: OXYCODONE
     Dosage: 120 MG, DAILY
  3. OXYCODONE [Concomitant]
     Active Substance: OXYCODONE
     Dosage: 80 MG, DAILY
  4. LOXOPROFEN [Concomitant]
     Active Substance: LOXOPROFEN
     Dosage: 180 MG, DAILY

REACTIONS (5)
  - Cancer pain [Recovering/Resolving]
  - Drug intolerance [Unknown]
  - Nausea [Recovered/Resolved]
  - Decreased appetite [Recovered/Resolved]
  - Somnolence [Not Recovered/Not Resolved]
